FAERS Safety Report 8811216 (Version 1)
Quarter: 2012Q4

REPORT INFORMATION
  Report Type: Spontaneous
  Country: US (occurrence: None)
  Receive Date: 20120924
  Receipt Date: 20120924
  Transmission Date: 20130627
  Serious: Yes (Hospitalization)
  Sender: FDA-Public Use
  Company Number: None

PATIENT
  Age: 63 Year
  Sex: Female
  Weight: 47.7 kg

DRUGS (2)
  1. GABAPENTIN [Suspect]
     Indication: PAIN
     Dosage: mg po
     Dates: start: 20120401, end: 20120918
  2. GABAPENTIN [Suspect]
     Indication: NEUROPATHIC PAIN
     Dosage: mg po
     Dates: start: 20120401, end: 20120918

REACTIONS (1)
  - Myoclonus [None]
